FAERS Safety Report 23973546 (Version 3)
Quarter: 2025Q2

REPORT INFORMATION
  Report Type: Spontaneous
  Country: US (occurrence: None)
  Receive Date: 20240613
  Receipt Date: 20250624
  Transmission Date: 20250716
  Serious: Yes (Hospitalization, Other)
  Sender: MDD OPERATIONS
  Company Number: US-MDD US Operations-MDD202312-005073

PATIENT
  Age: 76 Year
  Sex: Male

DRUGS (8)
  1. APOKYN [Suspect]
     Active Substance: APOMORPHINE HYDROCHLORIDE
     Indication: Parkinson^s disease
  2. APOKYN [Suspect]
     Active Substance: APOMORPHINE HYDROCHLORIDE
     Indication: Dyskinesia
     Route: 058
     Dates: start: 202307, end: 202407
  3. APOKYN [Suspect]
     Active Substance: APOMORPHINE HYDROCHLORIDE
     Indication: On and off phenomenon
     Route: 058
     Dates: start: 20231007
  4. APOKYN [Suspect]
     Active Substance: APOMORPHINE HYDROCHLORIDE
     Route: 058
     Dates: start: 20231017
  5. APOKYN [Suspect]
     Active Substance: APOMORPHINE HYDROCHLORIDE
     Route: 058
     Dates: start: 20231017, end: 202407
  6. APOKYN [Suspect]
     Active Substance: APOMORPHINE HYDROCHLORIDE
     Route: 058
     Dates: start: 202307
  7. CARBIDOPA\LEVODOPA [Concomitant]
     Active Substance: CARBIDOPA\LEVODOPA
  8. GOCOVRI [Concomitant]
     Active Substance: AMANTADINE

REACTIONS (21)
  - Dementia [Not Recovered/Not Resolved]
  - Fall [Unknown]
  - Hospitalisation [Unknown]
  - Fall [Not Recovered/Not Resolved]
  - Joint injury [Not Recovered/Not Resolved]
  - Nerve compression [Not Recovered/Not Resolved]
  - Myalgia [Unknown]
  - Bursitis infective [Unknown]
  - Confusional state [Not Recovered/Not Resolved]
  - Fall [Not Recovered/Not Resolved]
  - Fall [Not Recovered/Not Resolved]
  - Skeletal injury [Not Recovered/Not Resolved]
  - Joint swelling [Unknown]
  - Peripheral swelling [Unknown]
  - Hallucination [Unknown]
  - Somnolence [Unknown]
  - Aggression [Unknown]
  - Urinary tract infection [Recovered/Resolved]
  - Product dose omission issue [Unknown]
  - Inappropriate schedule of product administration [Unknown]
  - Therapy interrupted [Unknown]

NARRATIVE: CASE EVENT DATE: 20231201
